FAERS Safety Report 22066984 (Version 3)
Quarter: 2024Q1

REPORT INFORMATION
  Report Type: Spontaneous
  Country: FR (occurrence: FR)
  Receive Date: 20230306
  Receipt Date: 20240325
  Transmission Date: 20240409
  Serious: Yes (Congenital Anomaly)
  Sender: FDA-Public Use
  Company Number: FR-BIOGEN-2023BI01191535

PATIENT
  Sex: Female

DRUGS (1)
  1. TECFIDERA [Suspect]
     Active Substance: DIMETHYL FUMARATE
     Indication: Paternal exposure timing unspecified
     Route: 050
     Dates: start: 201904, end: 2022

REACTIONS (4)
  - Renal aplasia [Not Recovered/Not Resolved]
  - Ear malformation [Not Recovered/Not Resolved]
  - Congenital cranial nerve paralysis [Unknown]
  - Paternal exposure before pregnancy [Unknown]
